FAERS Safety Report 11088725 (Version 3)
Quarter: 2016Q1

REPORT INFORMATION
  Report Type: Spontaneous
  Country: US (occurrence: US)
  Receive Date: 20150504
  Receipt Date: 20160107
  Transmission Date: 20160525
  Serious: No
  Sender: FDA-Public Use
  Company Number: US-GLAXOSMITHKLINE-US2015GSK059343

PATIENT
  Age: 62 Year
  Sex: Male

DRUGS (4)
  1. TANZEUM [Suspect]
     Active Substance: ALBIGLUTIDE
     Dosage: 50 MG, WE
     Route: 042
     Dates: start: 2015
  2. NOVOLOG [Suspect]
     Active Substance: INSULIN ASPART
     Indication: PRODUCT USED FOR UNKNOWN INDICATION
  3. TANZEUM [Suspect]
     Active Substance: ALBIGLUTIDE
     Indication: TYPE 2 DIABETES MELLITUS
     Dosage: 30 MG, WE
     Route: 042
     Dates: start: 201503
  4. LANTUS [Suspect]
     Active Substance: INSULIN GLARGINE
     Indication: PRODUCT USED FOR UNKNOWN INDICATION

REACTIONS (8)
  - Blood glucose abnormal [Unknown]
  - Labelled drug-disease interaction medication error [Unknown]
  - Exposure via ingestion [Unknown]
  - Device use error [Unknown]
  - Accidental exposure to product [Unknown]
  - Dizziness [Unknown]
  - Drug dose omission [Unknown]
  - Product preparation error [Unknown]

NARRATIVE: CASE EVENT DATE: 20150702
